FAERS Safety Report 22066899 (Version 1)
Quarter: 2023Q1

REPORT INFORMATION
  Report Type: Spontaneous
  Country: US (occurrence: US)
  Receive Date: 20230306
  Receipt Date: 20230306
  Transmission Date: 20230418
  Serious: No
  Sender: FDA-Public Use
  Company Number: US-JNJFOC-20230304016

PATIENT
  Age: 53 Year
  Sex: Male

DRUGS (1)
  1. DARZALEX [Suspect]
     Active Substance: DARATUMUMAB
     Indication: Plasma cell myeloma
     Route: 041
     Dates: start: 20190612, end: 20190814

REACTIONS (4)
  - Chills [Unknown]
  - Back pain [Unknown]
  - Chest discomfort [Unknown]
  - Infusion related reaction [Unknown]
